FAERS Safety Report 4493439-X (Version None)
Quarter: 2004Q4

REPORT INFORMATION
  Report Type: 
  Country: None (occurrence: None)
  Receive Date: 20041102
  Receipt Date: 20041022
  Transmission Date: 20050328
  Serious: Yes (Other)
  Sender: FDA-Public Use
  Company Number: A0530942A

PATIENT
  Age: 50 Year
  Sex: Male

DRUGS (1)
  1. NICORETTE [Suspect]
     Indication: SMOKING CESSATION THERAPY
     Dosage: 2 MG / UNK / TRANSBUCCAL
     Route: 002
     Dates: start: 20030801

REACTIONS (2)
  - NERVOUSNESS [None]
  - RESTLESSNESS [None]
